FAERS Safety Report 6742820-4 (Version None)
Quarter: 2010Q2

REPORT INFORMATION
  Report Type: 
  Country: None (occurrence: None)
  Receive Date: 20100525
  Receipt Date: 20100510
  Transmission Date: 20101027
  Serious: Yes (Hospitalization)
  Sender: FDA-Public Use
  Company Number: DKLU1062256

PATIENT
  Age: 12 Year
  Sex: Male
  Weight: 20.9 kg

DRUGS (15)
  1. SABRIL [Suspect]
     Indication: CONVULSION
     Dosage: 500 MG MILLIGRAM(S), 1 IN 1 D, 500 MG MILLIGRAM(S), 2 IN 1 D
     Dates: start: 20100421
  2. SABRIL [Suspect]
     Indication: CONVULSION
     Dosage: 500 MG MILLIGRAM(S), 1 IN 1 D, 500 MG MILLIGRAM(S), 2 IN 1 D
     Dates: start: 20100428
  3. VIMPAT [Concomitant]
  4. TOPAMAX [Concomitant]
  5. ZONEGRAN [Concomitant]
  6. KEPPRA [Concomitant]
  7. PULMOZYME [Concomitant]
  8. MALATONIN (MELATONIN) [Concomitant]
  9. POLYVISOL [Concomitant]
  10. CITRACAL (CALCIUM CITRATE) [Concomitant]
  11. DIASTAT [Concomitant]
  12. HYOSCINE HBR HYT [Concomitant]
  13. LORAZEPAM [Concomitant]
  14. ALBUTERAL (SALBUTAMOL) [Concomitant]
  15. MIRALAX (MIRALAX) [Concomitant]

REACTIONS (8)
  - AGITATION [None]
  - AKATHISIA [None]
  - CONDITION AGGRAVATED [None]
  - DYSKINESIA [None]
  - EYE MOVEMENT DISORDER [None]
  - FOREIGN BODY [None]
  - MOOD ALTERED [None]
  - RESPIRATORY DISTRESS [None]
